FAERS Safety Report 9044802 (Version 3)
Quarter: 2013Q1

REPORT INFORMATION
  Report Type: Spontaneous
  Country: US (occurrence: US)
  Receive Date: 20130130
  Receipt Date: 20130222
  Transmission Date: 20140127
  Serious: Yes (Other)
  Sender: FDA-Public Use
  Company Number: US-UCBSA-076893

PATIENT
  Age: 32 Year
  Sex: Female
  Weight: 85.27 kg

DRUGS (4)
  1. CIMZIA [Suspect]
     Indication: CROHN^S DISEASE
     Dosage: DOSE: 400MG MONTHLY
     Route: 058
     Dates: start: 201208
  2. NEXIUM [Concomitant]
     Indication: GASTROOESOPHAGEAL REFLUX DISEASE
     Dosage: PRN
  3. LOMOTIL [Concomitant]
     Dosage: PRN
  4. PROBIOTIC [Concomitant]
     Dosage: DAILY

REACTIONS (3)
  - Fungal infection [Not Recovered/Not Resolved]
  - Dermatitis psoriasiform [Not Recovered/Not Resolved]
  - Paraesthesia [Not Recovered/Not Resolved]
